FAERS Safety Report 10312654 (Version 1)
Quarter: 2014Q3

REPORT INFORMATION
  Report Type: Spontaneous
  Country: DE (occurrence: None)
  Receive Date: 20140716
  Receipt Date: 20140716
  Transmission Date: 20150326
  Serious: Yes (Hospitalization)
  Sender: FDA-Public Use
  Company Number: 2430350

PATIENT
  Age: 39 Year
  Sex: Female

DRUGS (5)
  1. MIDAZOLAM [Suspect]
     Active Substance: MIDAZOLAM\MIDAZOLAM HYDROCHLORIDE
     Indication: INDUCTION OF ANAESTHESIA
  2. SEVOFLURANE. [Concomitant]
     Active Substance: SEVOFLURANE
  3. FENTANYL. [Concomitant]
     Active Substance: FENTANYL
  4. PROPOFOL. [Suspect]
     Active Substance: PROPOFOL
     Indication: SEDATIVE THERAPY
  5. PROPOFOL. [Suspect]
     Active Substance: PROPOFOL
     Indication: INDUCTION OF ANAESTHESIA

REACTIONS (12)
  - Eosinophilic pneumonia acute [None]
  - Respiratory failure [None]
  - Pneumothorax [None]
  - Peritonitis [None]
  - Pleural effusion [None]
  - Ileus paralytic [None]
  - General physical health deterioration [None]
  - Pneumothorax spontaneous [None]
  - Respiratory distress [None]
  - Rectal perforation [None]
  - Enterococcus test positive [None]
  - Escherichia test positive [None]
